FAERS Safety Report 16207405 (Version 1)
Quarter: 2020Q3

REPORT INFORMATION
  Report Type: Report from Study
  Country: IL (occurrence: IL)
  Receive Date: 20190417
  Receipt Date: 20190417
  Transmission Date: 20201105
  Serious: Yes (Other)
  Sender: FDA-Public Use
  Company Number: IL-ROCHE-2304655

PATIENT

DRUGS (1)
  1. ALECTINIB. [Suspect]
     Active Substance: ALECTINIB
     Indication: NON-SMALL CELL LUNG CANCER
     Route: 065

REACTIONS (10)
  - Oedema peripheral [Unknown]
  - Diarrhoea [Unknown]
  - Pleural effusion [Unknown]
  - Constipation [Unknown]
  - Aspartate aminotransferase increased [Unknown]
  - Pericardial effusion [Unknown]
  - Alanine aminotransferase increased [Unknown]
  - Fatigue [Unknown]
  - Nausea [Unknown]
  - Myalgia [Unknown]
